FAERS Safety Report 5700395-2 (Version None)
Quarter: 2008Q2

REPORT INFORMATION
  Report Type: 
  Country: None (occurrence: None)
  Receive Date: 20080408
  Receipt Date: 20080408
  Transmission Date: 20081010
  Serious: No
  Sender: FDA-Public Use
  Company Number: None

PATIENT
  Age: 46 Year
  Sex: Male
  Weight: 118.8 kg

DRUGS (1)
  1. SIMVASTATIN [Suspect]
     Dosage: 20MG EVERY DAY PO
     Route: 048
     Dates: start: 20071113, end: 20080229

REACTIONS (1)
  - CUTANEOUS LUPUS ERYTHEMATOSUS [None]
